FAERS Safety Report 21106351 (Version 2)
Quarter: 2022Q3

REPORT INFORMATION
  Report Type: Spontaneous
  Country: JP (occurrence: JP)
  Receive Date: 20220720
  Receipt Date: 20220801
  Transmission Date: 20221026
  Serious: Yes (Hospitalization, Other)
  Sender: FDA-Public Use
  Company Number: JP-UCBJ-CD202206932UCBPHAPROD

PATIENT
  Sex: Female

DRUGS (13)
  1. LEVETIRACETAM [Suspect]
     Active Substance: LEVETIRACETAM
     Indication: Partial seizures with secondary generalisation
     Dosage: 20MG/KG PER DAY
     Route: 048
  2. LEVETIRACETAM [Suspect]
     Active Substance: LEVETIRACETAM
     Dosage: 30MG/KG PER DAY
     Route: 048
  3. LEVETIRACETAM [Suspect]
     Active Substance: LEVETIRACETAM
     Dosage: 40MG/KG PER DAY
     Route: 048
  4. LEVETIRACETAM [Suspect]
     Active Substance: LEVETIRACETAM
     Dosage: 50MG/KG PER DAY
     Route: 048
  5. LEVETIRACETAM [Suspect]
     Active Substance: LEVETIRACETAM
     Dosage: 30 MILLIGRAM/KILOGRAM, 2X/DAY (BID)
     Route: 048
  6. METHYLPREDNISOLONE [Concomitant]
     Active Substance: METHYLPREDNISOLONE
     Indication: Product used for unknown indication
  7. TACROLIMUS [Concomitant]
     Active Substance: TACROLIMUS
     Indication: Product used for unknown indication
     Dosage: 0.05 MILLIGRAM/KILOGRAM, ONCE DAILY (QD)
  8. TACROLIMUS [Concomitant]
     Active Substance: TACROLIMUS
     Dosage: 0.1 MILLIGRAM/KILOGRAM, ONCE DAILY (QD)
  9. TACROLIMUS [Concomitant]
     Active Substance: TACROLIMUS
     Dosage: 0.15 MILLIGRAM/KILOGRAM, ONCE DAILY (QD)
  10. TACROLIMUS [Concomitant]
     Active Substance: TACROLIMUS
     Dosage: 0.2 MILLIGRAM/KILOGRAM, ONCE DAILY (QD)
  11. PREDNISOLONE [Concomitant]
     Active Substance: PREDNISOLONE
     Indication: Product used for unknown indication
     Dosage: 1 MILLIGRAM/KILOGRAM, ONCE DAILY (QD)
  12. IMMUNE GLOBULIN NOS [Concomitant]
     Active Substance: IMMUNE GLOBULIN NOS
     Indication: Product used for unknown indication
  13. PERAMPANEL [Concomitant]
     Active Substance: PERAMPANEL
     Indication: Product used for unknown indication
     Dosage: 0.025 MILLIGRAM/KILOGRAM, ONCE DAILY (QD)

REACTIONS (2)
  - Epilepsy [Recovered/Resolved]
  - Epilepsia partialis continua [Recovered/Resolved]
